FAERS Safety Report 9045203 (Version 1)
Quarter: 2013Q1

REPORT INFORMATION
  Report Type: Report from Study
  Country: US (occurrence: US)
  Receive Date: 20130130
  Receipt Date: 20130130
  Transmission Date: 20140127
  Serious: No
  Sender: FDA-Public Use
  Company Number: US-ABBOTT-12P-163-0970191-00

PATIENT
  Age: 56 Year
  Sex: Female

DRUGS (18)
  1. HUMIRA 40 MG/0.8 ML PEN [Suspect]
     Indication: RHEUMATOID ARTHRITIS
     Dates: start: 20120806
  2. PRO-AIR [Concomitant]
     Indication: ASTHMA
  3. TIZANIDINE [Concomitant]
     Indication: MUSCLE RELAXANT THERAPY
     Route: 048
  4. THEOPHYLLINE [Concomitant]
     Indication: ASTHMA
     Route: 048
  5. SYNTHROID [Concomitant]
     Indication: AUTOIMMUNE THYROIDITIS
     Route: 048
  6. PREMARIN [Concomitant]
     Indication: HORMONE REPLACEMENT THERAPY
     Dosage: 0.625MG EVERY DAY
     Route: 048
  7. PREDNISONE [Concomitant]
     Indication: RHEUMATOID ARTHRITIS
     Route: 048
  8. OMEPRAZOLE [Concomitant]
     Indication: GASTROOESOPHAGEAL REFLUX DISEASE
     Dosage: 40MG DAILY
     Route: 048
  9. METOPROLOL SUCCINATE [Concomitant]
     Indication: HYPERTENSION
     Route: 048
  10. METHOTREXATE [Concomitant]
     Indication: RHEUMATOID ARTHRITIS
     Dosage: 8 PILLS WEEKLY
     Route: 048
  11. CELEBREX [Concomitant]
     Indication: NEUROPATHY PERIPHERAL
     Dosage: 200MG DAILY
     Route: 048
  12. CYMBALTA [Concomitant]
     Indication: RHEUMATOID ARTHRITIS
     Dosage: 60MG DAILY
     Route: 048
  13. CYTOMEL [Concomitant]
     Indication: AUTOIMMUNE THYROIDITIS
  14. ENALAPRIL MALEATE [Concomitant]
     Indication: HYPERTENSION
     Route: 048
  15. FOLIC ACID [Concomitant]
     Indication: ANAEMIA
     Dosage: 1MG DAILY
     Route: 048
  16. GABAPENTIN [Concomitant]
     Indication: NEUROPATHY PERIPHERAL
     Route: 048
  17. HYDROCODONE [Concomitant]
     Indication: PAIN
     Dosage: 5/325MG EVERY 6 HOURS AS NEEDED
  18. LUNESTA [Concomitant]
     Indication: INSOMNIA
     Route: 048

REACTIONS (1)
  - Muscle spasms [Recovered/Resolved]
